FAERS Safety Report 5698785-X (Version None)
Quarter: 2008Q2

REPORT INFORMATION
  Report Type: 
  Country: None (occurrence: None)
  Receive Date: 20080404
  Receipt Date: 20080326
  Transmission Date: 20081010
  Serious: Yes (Death)
  Sender: FDA-Public Use
  Company Number: 2007SP024238

PATIENT
  Age: 62 Year
  Weight: 65 kg

DRUGS (14)
  1. NOXAFIL [Suspect]
     Indication: ZYGOMYCOSIS
     Dosage: 400 MG; BID; PO
     Route: 048
     Dates: start: 20071026, end: 20071124
  2. AMBISOME [Suspect]
     Indication: ZYGOMYCOSIS
     Dosage: 360 MG; QD; IV, 450 MG; QD; IV, 325 MG; QD; IV
     Route: 042
     Dates: start: 20071005, end: 20071017
  3. AMBISOME [Suspect]
     Indication: ZYGOMYCOSIS
     Dosage: 360 MG; QD; IV, 450 MG; QD; IV, 325 MG; QD; IV
     Route: 042
     Dates: start: 20071018, end: 20071019
  4. AMBISOME [Suspect]
     Indication: ZYGOMYCOSIS
     Dosage: 360 MG; QD; IV, 450 MG; QD; IV, 325 MG; QD; IV
     Route: 042
     Dates: start: 20071120, end: 20071129
  5. ZOVIRAX [Concomitant]
  6. LOSEC I.V. [Concomitant]
  7. THEOPHYLLINE [Concomitant]
  8. MEDROL [Concomitant]
  9. NEURONTIN [Concomitant]
  10. NEUROBION (THIAMINE HCL; PYRIDOXINE HCL, CYANOCOBALAMIN) [Concomitant]
  11. FILICINE [Concomitant]
  12. CIPROXIN [Concomitant]
  13. SEPTRIN FORTE (TRIMETHOPRIM / SULFAMETHOXAZOLE) [Concomitant]
  14. DALACIN [Concomitant]

REACTIONS (5)
  - DISEASE PROGRESSION [None]
  - HEPATOTOXICITY [None]
  - MYOCARDIAL INFARCTION [None]
  - RESPIRATORY FAILURE [None]
  - ZYGOMYCOSIS [None]
